FAERS Safety Report 11202341 (Version 1)
Quarter: 2015Q2

REPORT INFORMATION
  Report Type: Spontaneous
  Country: US (occurrence: None)
  Receive Date: 20150617
  Receipt Date: 20150617
  Transmission Date: 20150821
  Serious: Yes (Hospitalization)
  Sender: FDA-Public Use
  Company Number: None

PATIENT
  Age: 74 Year
  Sex: Male
  Weight: 117.03 kg

DRUGS (2)
  1. WARFARIN [Suspect]
     Active Substance: WARFARIN
     Indication: ATRIAL FIBRILLATION
     Dosage: 1.25MG M, W, F 2.5 MG PM PO
     Route: 048
     Dates: start: 20100413, end: 20100422
  2. WARFARIN [Suspect]
     Active Substance: WARFARIN
     Dosage: 1.25MG M, W, F 2.5 MG PM PO
     Route: 048
     Dates: start: 20100413, end: 20100422

REACTIONS (3)
  - Haemorrhage [None]
  - Full blood count abnormal [None]
  - Gastric haemorrhage [None]

NARRATIVE: CASE EVENT DATE: 20100413
